FAERS Safety Report 8446586-1 (Version None)
Quarter: 2012Q2

REPORT INFORMATION
  Report Type: 
  Country: None (occurrence: None)
  Receive Date: 20120619
  Receipt Date: 20120606
  Transmission Date: 20120825
  Serious: Yes (Other)
  Sender: FDA-Public Use
  Company Number: JP-BRISTOL-MYERS SQUIBB COMPANY-16666398

PATIENT
  Age: 56 Year
  Sex: Female

DRUGS (3)
  1. TRIAZOLAM [Concomitant]
     Dosage: TAB
     Dates: start: 20120329
  2. LEVOTHYROXINE SODIUM [Concomitant]
     Dosage: TAB
     Dates: start: 20030723
  3. ARIPIPRAZOLE [Suspect]
     Indication: SCHIZOPHRENIA
     Route: 030
     Dates: start: 20120329, end: 20120524

REACTIONS (3)
  - DELUSION OF REFERENCE [None]
  - ANXIETY [None]
  - SUICIDAL IDEATION [None]
